FAERS Safety Report 5808594-6 (Version None)
Quarter: 2008Q3

REPORT INFORMATION
  Report Type: 
  Country: None (occurrence: None)
  Receive Date: 20080714
  Receipt Date: 20080704
  Transmission Date: 20090109
  Serious: Yes (Hospitalization)
  Sender: FDA-Public Use
  Company Number: IT-AMGEN-UK258618

PATIENT
  Sex: Male

DRUGS (3)
  1. PANITUMUMAB [Suspect]
     Indication: SQUAMOUS CELL CARCINOMA
     Route: 042
     Dates: start: 20070809
  2. CISPLATIN [Suspect]
  3. OMEPRAZOLE [Concomitant]
     Route: 048
     Dates: start: 20070809

REACTIONS (2)
  - HYPOKALAEMIA [None]
  - VOMITING [None]
